FAERS Safety Report 21214482 (Version 1)
Quarter: 2022Q3

REPORT INFORMATION
  Report Type: Report from Study
  Country: CA (occurrence: CA)
  Receive Date: 20220816
  Receipt Date: 20220816
  Transmission Date: 20221027
  Serious: Yes (Death, Other)
  Sender: FDA-Public Use
  Company Number: CA-CELLTRION INC.-2022CA013043

PATIENT

DRUGS (1)
  1. TRUXIMA [Suspect]
     Active Substance: RITUXIMAB-ABBS
     Indication: Rheumatoid arthritis
     Dosage: UNK
     Route: 042

REACTIONS (3)
  - Death [Fatal]
  - Insurance issue [Unknown]
  - Drug ineffective [Unknown]

NARRATIVE: CASE EVENT DATE: 20220402
